FAERS Safety Report 8955075 (Version 1)
Quarter: 2012Q4

REPORT INFORMATION
  Report Type: 
  Country: US (occurrence: US)
  Receive Date: 20121210
  Receipt Date: 20121210
  Transmission Date: 20130627
  Serious: No
  Sender: FDA-Public Use
  Company Number: US-PFIZER INC-2012310084

PATIENT
  Age: 83 Year
  Sex: Female
  Weight: 68.03 kg

DRUGS (2)
  1. EFFEXOR [Suspect]
     Indication: ANXIETY
     Dosage: 150 mg, 1x/day
     Route: 048
  2. EFFEXOR [Suspect]
     Indication: DEPRESSION

REACTIONS (2)
  - Medication residue [Unknown]
  - Drug ineffective [Unknown]
